FAERS Safety Report 8545260-0 (Version None)
Quarter: 2012Q3

REPORT INFORMATION
  Report Type: 
  Country: None (occurrence: None)
  Receive Date: 20120719
  Receipt Date: 20120719
  Transmission Date: 20120928
  Serious: Yes (Hospitalization)
  Sender: FDA-Public Use
  Company Number: None

PATIENT
  Age: 73 Year
  Sex: Male
  Weight: 73.6 kg

DRUGS (2)
  1. DIGOXIN [Suspect]
     Dosage: MG PO
     Route: 048
     Dates: start: 20110922, end: 20120520
  2. ATENOLOL [Suspect]
     Dosage: MG PO
     Route: 048
     Dates: start: 20110922, end: 20120520

REACTIONS (1)
  - BRADYCARDIA [None]
